FAERS Safety Report 20604820 (Version 1)
Quarter: 2022Q1

REPORT INFORMATION
  Report Type: Spontaneous
  Country: FR (occurrence: FR)
  Receive Date: 20220317
  Receipt Date: 20220317
  Transmission Date: 20220423
  Serious: Yes (Other)
  Sender: FDA-Public Use
  Company Number: FR-Merck Healthcare KGaA-9209640

PATIENT
  Age: 67 Year
  Sex: Male

DRUGS (10)
  1. IRINOTECAN [Suspect]
     Active Substance: IRINOTECAN
     Indication: Colorectal cancer metastatic
     Dosage: UNK
     Route: 065
  2. OXALIPLATIN [Suspect]
     Active Substance: OXALIPLATIN
     Indication: Colorectal cancer metastatic
     Dosage: 85 MILLIGRAM/SQ. METER
     Route: 065
     Dates: start: 20160526
  3. CETUXIMAB [Suspect]
     Active Substance: CETUXIMAB
     Indication: Colorectal cancer metastatic
     Dosage: 500 MILLIGRAM/SQ. METER, 2 WEEKS
     Route: 065
     Dates: start: 20160629
  4. CETUXIMAB [Suspect]
     Active Substance: CETUXIMAB
     Dosage: 900 MILLIGRAM/SQ. METER
     Route: 065
     Dates: start: 20160824
  5. CETUXIMAB [Suspect]
     Active Substance: CETUXIMAB
     Dosage: 795 MILLIGRAM/SQ. METER
     Route: 065
     Dates: start: 20160907
  6. CETUXIMAB [Suspect]
     Active Substance: CETUXIMAB
     Dosage: 500 MILLIGRAM/SQ. METER, 2 WEEKS
     Route: 065
     Dates: start: 20181024
  7. CETUXIMAB [Suspect]
     Active Substance: CETUXIMAB
     Dosage: 500 MILLIGRAM/SQ. METER, 2 WEEKS
     Route: 065
  8. CETUXIMAB [Suspect]
     Active Substance: CETUXIMAB
     Dosage: 640 MILLIGRAM/SQ. METER
     Route: 065
     Dates: start: 20161214
  9. FLUOROURACIL [Suspect]
     Active Substance: FLUOROURACIL
     Indication: Colorectal cancer metastatic
     Dosage: 2400 MILLIGRAM/SQ. METER
     Route: 065
     Dates: start: 20160526
  10. FLUOROURACIL [Suspect]
     Active Substance: FLUOROURACIL
     Dosage: 400 MILLIGRAM/SQ. METER
     Route: 065
     Dates: start: 20160526

REACTIONS (4)
  - Neuropathy peripheral [Recovered/Resolved]
  - Hypomagnesaemia [Recovered/Resolved]
  - Skin toxicity [Recovered/Resolved]
  - Off label use [Unknown]

NARRATIVE: CASE EVENT DATE: 20160629
